FAERS Safety Report 15587199 (Version 2)
Quarter: 2018Q4

REPORT INFORMATION
  Report Type: Spontaneous
  Country: UA (occurrence: UA)
  Receive Date: 20181105
  Receipt Date: 20181123
  Transmission Date: 20190205
  Serious: Yes (Death, Other)
  Sender: FDA-Public Use
  Company Number: UA-ASTRAZENECA-2018SF44283

PATIENT
  Age: 25156 Day
  Sex: Male

DRUGS (3)
  1. CO -PLAVIX (ACETYLSALICYLIC ACID\CLOPIDOGREL) [Suspect]
     Active Substance: ASPIRIN\CLOPIDOGREL
     Dosage: 75
     Route: 065
  2. CRESTOR [Suspect]
     Active Substance: ROSUVASTATIN CALCIUM
     Dosage: 40
     Route: 048
  3. RANEXA [Suspect]
     Active Substance: RANOLAZINE
     Dosage: 1000
     Route: 065

REACTIONS (6)
  - Arteriosclerosis coronary artery [Unknown]
  - Myocardial infarction [Unknown]
  - Sudden death [Fatal]
  - Cardiac failure chronic [Unknown]
  - Hypertensive heart disease [Unknown]
  - Myocardial fibrosis [Unknown]

NARRATIVE: CASE EVENT DATE: 20181024
